FAERS Safety Report 10523929 (Version 1)
Quarter: 2014Q4

REPORT INFORMATION
  Report Type: Spontaneous
  Country: US (occurrence: None)
  Receive Date: 20141015
  Receipt Date: 20141015
  Transmission Date: 20150528
  Serious: Yes (Hospitalization)
  Sender: FDA-Public Use
  Company Number: None

PATIENT
  Age: 74 Year
  Sex: Female

DRUGS (2)
  1. CAPECITABINE 150 MG TEVA [Suspect]
     Active Substance: CAPECITABINE
     Indication: PRODUCT USED FOR UNKNOWN INDICATION
     Dosage: 150 MG, BID X 7 ON/ 7 OFF, PO
     Route: 048
     Dates: start: 201408, end: 201409
  2. CAPECITABINE 500 MG TEVA PHARMACEUTICALS USA INC [Suspect]
     Active Substance: CAPECITABINE
     Indication: PRODUCT USED FOR UNKNOWN INDICATION
     Dosage: 1000MG, BID X7 ON/ 7 OFF
     Route: 048
     Dates: start: 201408, end: 201409

REACTIONS (2)
  - Memory impairment [None]
  - Hypotension [None]

NARRATIVE: CASE EVENT DATE: 20141005
